FAERS Safety Report 5712591-9 (Version None)
Quarter: 2008Q2

REPORT INFORMATION
  Report Type: 
  Country: None (occurrence: None)
  Receive Date: 20080418
  Receipt Date: 20080415
  Transmission Date: 20081010
  Serious: Yes (Hospitalization)
  Sender: FDA-Public Use
  Company Number: CHPA2008CA06619

PATIENT
  Age: 5 Year
  Sex: Male

DRUGS (1)
  1. TRIAMINIC DAY TIME COLD + COUGH (NCH) (DEXTROMETHORPHAN HYDROBROMIDE, [Suspect]
     Indication: NASOPHARYNGITIS
     Dosage: 2 TSP, BID, ORAL
     Route: 048
     Dates: start: 20080404, end: 20080407

REACTIONS (1)
  - CONVULSION [None]
